FAERS Safety Report 7434533-0 (Version None)
Quarter: 2011Q2

REPORT INFORMATION
  Report Type: 
  Country: None (occurrence: None)
  Receive Date: 20110420
  Receipt Date: 20110420
  Transmission Date: 20111010
  Serious: Yes (Hospitalization)
  Sender: FDA-Public Use
  Company Number: None

PATIENT
  Age: 34 Year
  Sex: Female
  Weight: 113 kg

DRUGS (1)
  1. HUMIRA [Suspect]
     Indication: PSORIASIS
     Dosage: 40MG EVERY 2 WEEKS SQ
     Route: 058
     Dates: start: 20110214, end: 20110404

REACTIONS (6)
  - PAIN IN EXTREMITY [None]
  - HEADACHE [None]
  - PAIN [None]
  - NECK PAIN [None]
  - PARAESTHESIA [None]
  - JOINT RANGE OF MOTION DECREASED [None]
